FAERS Safety Report 21856686 (Version 1)
Quarter: 2023Q1

REPORT INFORMATION
  Report Type: Spontaneous
  Country: JP (occurrence: JP)
  Receive Date: 20230113
  Receipt Date: 20230113
  Transmission Date: 20230417
  Serious: Yes (Hospitalization, Other)
  Sender: FDA-Public Use
  Company Number: JP-KYOWAKIRIN-2022AKK012245

PATIENT
  Age: 51 Year
  Sex: Female

DRUGS (12)
  1. PEGFILGRASTIM [Suspect]
     Active Substance: PEGFILGRASTIM
     Indication: Colony stimulating factor therapy
     Dosage: 3.6 MILLIGRAM, Q3WK
     Route: 058
     Dates: start: 20220411, end: 20220704
  2. PEGFILGRASTIM [Suspect]
     Active Substance: PEGFILGRASTIM
     Dosage: UNK
     Route: 058
     Dates: start: 20220706
  3. CYCLOPHOSPHAMIDE [Concomitant]
     Active Substance: CYCLOPHOSPHAMIDE
     Indication: Breast cancer
     Dosage: 910 MILLIGRAM, Q3WK
     Route: 041
     Dates: start: 20220411, end: 20220613
  4. EPIRUBICIN HYDROCHLORIDE [Concomitant]
     Active Substance: EPIRUBICIN HYDROCHLORIDE
     Indication: Breast cancer
     Dosage: 130 MILLIGRAM, Q3WK
     Route: 041
     Dates: start: 20220411, end: 20220613
  5. DOCETAXEL [Concomitant]
     Active Substance: DOCETAXEL
     Indication: Breast cancer
     Dosage: 110 MILLIGRAM, Q3WK
     Route: 041
     Dates: start: 20220704, end: 20220704
  6. HERCEPTIN [Concomitant]
     Active Substance: TRASTUZUMAB
     Indication: Breast cancer
     Dosage: 380 MILLIGRAM, Q3WK
     Route: 041
     Dates: start: 20220704
  7. PERJETA [Concomitant]
     Active Substance: PERTUZUMAB
     Indication: Breast cancer
     Dosage: 840 MILLIGRAM, Q3WK
     Route: 041
     Dates: start: 20220704
  8. CYCLOPHOSPHAMIDE [Concomitant]
     Active Substance: CYCLOPHOSPHAMIDE
     Indication: Breast cancer
     Dosage: 910 MILLIGRAM, Q3WK
     Route: 040
     Dates: start: 20220411, end: 20220613
  9. PALONOSETRON [Concomitant]
     Active Substance: PALONOSETRON
     Indication: Breast cancer
     Dosage: 0.75 MILLIGRAM, Q3WK
     Route: 041
     Dates: start: 20220411, end: 20220613
  10. DEXAMETHASONE SODIUM PHOSPHATE [Concomitant]
     Active Substance: DEXAMETHASONE SODIUM PHOSPHATE
     Indication: Breast cancer
     Dosage: 9.9 MILLIGRAM, Q3WK
     Route: 041
     Dates: start: 20220411, end: 20220613
  11. APREPITANT [Concomitant]
     Active Substance: APREPITANT
     Indication: Breast cancer
     Dosage: 80 MILLIGRAM, Q3WK
     Route: 048
     Dates: start: 20220411, end: 20220613
  12. DECADRON [Concomitant]
     Active Substance: DEXAMETHASONE
     Indication: Breast cancer
     Dosage: 8 MILLIGRAM
     Route: 048
     Dates: start: 20220411, end: 20220613

REACTIONS (1)
  - Takayasu^s arteritis [Recovering/Resolving]

NARRATIVE: CASE EVENT DATE: 20220714
